FAERS Safety Report 5728333-7 (Version None)
Quarter: 2008Q2

REPORT INFORMATION
  Report Type: 
  Country: None (occurrence: None)
  Receive Date: 20080506
  Receipt Date: 20080430
  Transmission Date: 20081010
  Serious: Yes (Other)
  Sender: FDA-Public Use
  Company Number: PHBS2008BE03493

PATIENT
  Age: 46 Year
  Sex: Male

DRUGS (14)
  1. CLOZAPINE [Suspect]
     Indication: PSYCHOTIC DISORDER
     Dosage: 400 MG/DAY
     Route: 048
     Dates: start: 20060329, end: 20070925
  2. ZYPREXA [Suspect]
     Indication: PSYCHOTIC DISORDER
     Dosage: UNK, UNK
     Route: 065
     Dates: start: 20070901
  3. KEMADRIN [Concomitant]
  4. PARACETAMOL [Concomitant]
  5. SOLIAN [Concomitant]
  6. XANAX [Concomitant]
  7. CLOPIXOL DEPOT [Concomitant]
  8. LEXOTAN [Concomitant]
  9. OMEPRAZOLE [Concomitant]
  10. BURONIL [Concomitant]
  11. LORAZEPAM [Concomitant]
  12. ETUMINE [Concomitant]
  13. AUGMENTIN '125' [Concomitant]
  14. ZANTAC [Concomitant]

REACTIONS (6)
  - CHRONIC MYELOID LEUKAEMIA [None]
  - DECREASED APPETITE [None]
  - LUMBAR PUNCTURE ABNORMAL [None]
  - SALIVARY HYPERSECRETION [None]
  - WEIGHT DECREASED [None]
  - WHITE BLOOD CELL COUNT INCREASED [None]
